FAERS Safety Report 7674895-2 (Version None)
Quarter: 2011Q3

REPORT INFORMATION
  Report Type: 
  Country: None (occurrence: None)
  Receive Date: 20110810
  Receipt Date: 20110727
  Transmission Date: 20111222
  Serious: Yes (Hospitalization)
  Sender: FDA-Public Use
  Company Number: JP-ELI_LILLY_AND_COMPANY-JP201107007827

PATIENT
  Age: 21 Year
  Sex: Male

DRUGS (2)
  1. ZYPREXA [Suspect]
     Dosage: 20 MG, QD
     Route: 048
  2. ZYPREXA [Suspect]
     Indication: SCHIZOPHRENIA, PARANOID TYPE
     Dosage: 15 MG, QD
     Route: 048

REACTIONS (5)
  - HALLUCINATION, AUDITORY [None]
  - CHEST DISCOMFORT [None]
  - PARKINSONISM [None]
  - SINUS TACHYCARDIA [None]
  - ANXIETY [None]
